FAERS Safety Report 7722388-6 (Version None)
Quarter: 2011Q3

REPORT INFORMATION
  Report Type: 
  Country: None (occurrence: None)
  Receive Date: 20110825
  Receipt Date: 20110818
  Transmission Date: 20111222
  Serious: Yes (Hospitalization)
  Sender: FDA-Public Use
  Company Number: 15849557

PATIENT
  Age: 68 Year
  Sex: Female

DRUGS (6)
  1. ENOXAPARIN SODIUM [Suspect]
     Indication: EMBOLISM
     Dosage: 1 MILLIGRAM/KILOGRAM 2/1 DAY
     Route: 058
     Dates: start: 20101230, end: 20110103
  2. PLACEBO [Suspect]
     Indication: EMBOLISM
     Dates: start: 20101230
  3. APIXABAN [Suspect]
     Indication: EMBOLISM
     Dosage: 1 DOSAGE FORM 1 DAY, ORAL
     Route: 048
     Dates: start: 20110106, end: 20110617
  4. TRIAZOLAM [Concomitant]
  5. WARFARIN SODIUM [Suspect]
     Indication: EMBOLISM
     Dosage: 1 DOSAGE FORM 1 DAY, ORAL
     Route: 048
     Dates: start: 20101230, end: 20110616
  6. LANSOPRAZOLE [Concomitant]

REACTIONS (1)
  - PNEUMONIA [None]
